FAERS Safety Report 4982121-8 (Version None)
Quarter: 2006Q2

REPORT INFORMATION
  Report Type: 
  Country: None (occurrence: None)
  Receive Date: 20060425
  Receipt Date: 20051006
  Transmission Date: 20061013
  Serious: Yes (Hospitalization, Disabling)
  Sender: FDA-Public Use
  Company Number: US-MERCK-0510USA05845

PATIENT
  Age: 79 Year
  Sex: Male
  Weight: 69 kg

DRUGS (1)
  1. VIOXX [Suspect]
     Indication: OSTEOARTHRITIS
     Route: 048
     Dates: start: 20000425, end: 20041024

REACTIONS (6)
  - CEREBROVASCULAR ACCIDENT [None]
  - HAEMORRHAGIC DISORDER [None]
  - HAND FRACTURE [None]
  - SKIN LACERATION [None]
  - SPINAL OSTEOARTHRITIS [None]
  - TRANSIENT ISCHAEMIC ATTACK [None]
